FAERS Safety Report 19211962 (Version 2)
Quarter: 2021Q2

REPORT INFORMATION
  Report Type: Report from Study
  Country: US (occurrence: US)
  Receive Date: 20210504
  Receipt Date: 20210511
  Transmission Date: 20210717
  Serious: Yes (Hospitalization)
  Sender: FDA-Public Use
  Company Number: US-GLAXOSMITHKLINE-US2019TSO170223

PATIENT
  Age: 61 Year
  Sex: Female
  Weight: 74.3 kg

DRUGS (140)
  1. NIRAPARIB [Suspect]
     Active Substance: NIRAPARIB
     Dosage: UNK
     Dates: end: 20190920
  2. PREDNISONE. [Concomitant]
     Active Substance: PREDNISONE
     Dosage: 50 MG
  3. LANTUS [Concomitant]
     Active Substance: INSULIN GLARGINE
     Dosage: 35 DF
  4. LANTUS [Concomitant]
     Active Substance: INSULIN GLARGINE
     Dosage: 25 DF
  5. LANTUS [Concomitant]
     Active Substance: INSULIN GLARGINE
     Dosage: 14 DF
  6. HYGROTON [Concomitant]
     Active Substance: CHLORTHALIDONE
     Indication: HYPERTENSION
     Dosage: 25 MG
  7. OXYCODONE [Concomitant]
     Active Substance: OXYCODONE
     Indication: MYALGIA
     Dosage: 5 MG
  8. TYLENOL [Concomitant]
     Active Substance: ACETAMINOPHEN
     Indication: ALANINE AMINOTRANSFERASE INCREASED
     Dosage: 650 MG
  9. TYLENOL [Concomitant]
     Active Substance: ACETAMINOPHEN
     Indication: PYREXIA
     Dosage: 1000 DF
  10. SENNA [Concomitant]
     Active Substance: SENNA LEAF\SENNOSIDES\SENNOSIDES A AND B
     Indication: SEPSIS
     Dosage: 2 DF
  11. SODIUM CHLORIDE. [Concomitant]
     Active Substance: SODIUM CHLORIDE
     Dosage: 1000 ML
  12. DOCETAXEL. [Suspect]
     Active Substance: DOCETAXEL
  13. NIRAPARIB [Suspect]
     Active Substance: NIRAPARIB
     Dosage: 200 MG, QD
     Dates: start: 20190910
  14. NIRAPARIB [Suspect]
     Active Substance: NIRAPARIB
     Dosage: 200 MG
     Dates: end: 20190916
  15. DOSTARLIMAB [Suspect]
     Active Substance: DOSTARLIMAB
     Dosage: 1000 MG, CYC?EVERY 6 WEEKS
     Dates: start: 20190531, end: 20190531
  16. LOSARTAN. [Concomitant]
     Active Substance: LOSARTAN
     Indication: HYPERTENSION
     Dosage: 50 MG, BID
     Route: 048
     Dates: start: 20190921, end: 20190924
  17. PREDNISONE. [Concomitant]
     Active Substance: PREDNISONE
     Dosage: 30 MG
  18. PREDNISONE. [Concomitant]
     Active Substance: PREDNISONE
     Dosage: 10 DF
  19. LANTUS [Concomitant]
     Active Substance: INSULIN GLARGINE
     Indication: PYREXIA
     Dosage: 37 DF
  20. LANTUS [Concomitant]
     Active Substance: INSULIN GLARGINE
     Dosage: 15 DF
  21. LANTUS [Concomitant]
     Active Substance: INSULIN GLARGINE
     Dosage: 32 DF
  22. ACETAMINOPHEN. [Concomitant]
     Active Substance: ACETAMINOPHEN
     Indication: COLITIS
     Dosage: 650?975 MG
     Route: 048
     Dates: start: 20190917, end: 20190919
  23. FAMOTIDINE. [Concomitant]
     Active Substance: FAMOTIDINE
     Indication: BREAST CELLULITIS
  24. PREGABALIN. [Concomitant]
     Active Substance: PREGABALIN
     Indication: PYREXIA
     Dosage: 100 MG, BID
     Route: 048
     Dates: start: 20190918, end: 20190919
  25. PREGABALIN. [Concomitant]
     Active Substance: PREGABALIN
     Indication: NEURALGIA
     Dosage: 100 MG, BID
     Route: 048
     Dates: start: 20190921, end: 20190924
  26. CRESTOR [Concomitant]
     Active Substance: ROSUVASTATIN CALCIUM
     Indication: HYPERLIPIDAEMIA
     Dosage: 5 MG
  27. ESOMEPRAZOLE MAGNESIUM. [Concomitant]
     Active Substance: ESOMEPRAZOLE MAGNESIUM
     Indication: GASTROOESOPHAGEAL REFLUX DISEASE
     Dosage: 40 MG
  28. DIPHENHYDRAMINE HYDROCHLORIDE. [Concomitant]
     Active Substance: DIPHENHYDRAMINE HYDROCHLORIDE
     Indication: PREMEDICATION
     Dosage: 25 MG
  29. MIRALAX [Concomitant]
     Active Substance: POLYETHYLENE GLYCOL 3350
     Indication: ALANINE AMINOTRANSFERASE INCREASED
  30. OXYCODONE [Concomitant]
     Active Substance: OXYCODONE
     Indication: SEPSIS
  31. MELATONIN [Concomitant]
     Active Substance: MELATONIN
     Indication: BREAST CELLULITIS
  32. ONDASETRON [Concomitant]
     Active Substance: ONDANSETRON
     Dosage: 8 UNK
  33. HUMALOG [Concomitant]
     Active Substance: INSULIN LISPRO
     Indication: HYPERGLYCAEMIA
     Dosage: 1 DF
  34. POLYTRIM OPHTHALMIC [Concomitant]
     Indication: VITRECTOMY
     Dosage: 1 DF
  35. PACLITAXEL. [Suspect]
     Active Substance: PACLITAXEL
     Dosage: 744 MG, SINGLE
     Route: 042
     Dates: start: 20190510, end: 20190510
  36. BEVACIZUMAB. [Suspect]
     Active Substance: BEVACIZUMAB
     Indication: OVARIAN CANCER
     Dosage: NOT ADMINISTRATED
     Route: 042
  37. PREDNISONE. [Concomitant]
     Active Substance: PREDNISONE
     Dosage: 20 DF
  38. PREDNISONE. [Concomitant]
     Active Substance: PREDNISONE
     Dosage: 5 DF
  39. LANTUS [Concomitant]
     Active Substance: INSULIN GLARGINE
     Indication: HYPERGLYCAEMIA
     Dosage: 35 OTHER
     Route: 058
     Dates: start: 20190828, end: 20191001
  40. LANTUS [Concomitant]
     Active Substance: INSULIN GLARGINE
     Dosage: 17 DF
  41. ACETAMINOPHEN. [Concomitant]
     Active Substance: ACETAMINOPHEN
     Indication: PYREXIA
     Dosage: 1000 MG
     Route: 048
     Dates: start: 20190917, end: 20190919
  42. METOPROLOL. [Concomitant]
     Active Substance: METOPROLOL
     Indication: PYREXIA
     Dosage: 12.5 MG, BID
     Route: 048
     Dates: start: 20190918, end: 20190919
  43. CIPROFLOXACIN. [Concomitant]
     Active Substance: CIPROFLOXACIN
     Indication: COLITIS
     Dosage: 500 MG
  44. CEFEPIME [Concomitant]
     Active Substance: CEFEPIME HYDROCHLORIDE
     Dosage: 2 G
  45. HYDROMORPHONE [Concomitant]
     Active Substance: HYDROMORPHONE
     Indication: COLITIS
     Dosage: 0.2 MG
  46. MONISTAT [Concomitant]
     Active Substance: MICONAZOLE NITRATE
     Indication: VAGINAL INFECTION
     Dosage: 1 DF
  47. SODIUM CHLORIDE. [Concomitant]
     Active Substance: SODIUM CHLORIDE
     Indication: SEPSIS
     Dosage: 50 DF
     Route: 042
     Dates: start: 20190921, end: 20190924
  48. SODIUM CHLORIDE. [Concomitant]
     Active Substance: SODIUM CHLORIDE
     Dosage: 2544 UNK
  49. NIRAPARIB [Suspect]
     Active Substance: NIRAPARIB
     Indication: OVARIAN CANCER
     Dosage: 300 MG, QD
     Dates: start: 20190715
  50. DOSTARLIMAB [Suspect]
     Active Substance: DOSTARLIMAB
     Dosage: UNK
     Dates: start: 20191025
  51. PREDNISONE. [Concomitant]
     Active Substance: PREDNISONE
     Indication: PNEUMONITIS
     Dosage: 30 MG, QD
     Route: 048
     Dates: start: 20190821, end: 20190827
  52. PREDNISONE. [Concomitant]
     Active Substance: PREDNISONE
     Indication: MEMORY IMPAIRMENT
     Dosage: 20 MG, QD
     Route: 048
     Dates: start: 20190828, end: 20190903
  53. PREDNISONE. [Concomitant]
     Active Substance: PREDNISONE
     Dosage: 5 MG EVERY OTHER DAY
     Dates: start: 20190919, end: 20190919
  54. PREDNISONE. [Concomitant]
     Active Substance: PREDNISONE
     Dosage: 70 MG
  55. LANTUS [Concomitant]
     Active Substance: INSULIN GLARGINE
     Dosage: 23 UNK
  56. FAMOTIDINE. [Concomitant]
     Active Substance: FAMOTIDINE
     Indication: SEPSIS
  57. SENNA ALEXANDRINA [Concomitant]
     Active Substance: SENNA LEAF
     Indication: CONSTIPATION
     Dosage: 2 DF
  58. OXYCODONE [Concomitant]
     Active Substance: OXYCODONE
     Indication: BREAST CELLULITIS
  59. RANITIDINE. [Concomitant]
     Active Substance: RANITIDINE
     Indication: GASTROOESOPHAGEAL REFLUX DISEASE
     Dosage: 75 MG
  60. TRAZODONE [Concomitant]
     Active Substance: TRAZODONE HYDROCHLORIDE
     Indication: INSOMNIA
     Dosage: 50 MG
  61. METRONIDAZOLE. [Concomitant]
     Active Substance: METRONIDAZOLE
     Dosage: 500 MG
  62. CEFEPIME [Concomitant]
     Active Substance: CEFEPIME HYDROCHLORIDE
     Indication: COLITIS
     Dosage: 1 G
  63. HYDROMORPHONE [Concomitant]
     Active Substance: HYDROMORPHONE
     Dosage: 0.5 MG
  64. ONDASETRON [Concomitant]
     Active Substance: ONDANSETRON
     Indication: COLITIS
     Dosage: 4 MG
  65. PANTOPRAZOL [Concomitant]
     Active Substance: PANTOPRAZOLE SODIUM
     Indication: ALANINE AMINOTRANSFERASE INCREASED
     Dosage: 40 ML
  66. HUMALOG [Concomitant]
     Active Substance: INSULIN LISPRO
     Dosage: 5 UNK
  67. PREDNISOLONE ACETATE. [Concomitant]
     Active Substance: PREDNISOLONE ACETATE
     Indication: VITRECTOMY
     Dosage: 1 DF
  68. VANCOMYCIN [Concomitant]
     Active Substance: VANCOMYCIN
     Indication: SEPSIS
     Dosage: 1.5 DF
  69. VANCOMYCIN [Concomitant]
     Active Substance: VANCOMYCIN
     Indication: BREAST CELLULITIS
  70. SODIUM CHLORIDE. [Concomitant]
     Active Substance: SODIUM CHLORIDE
     Indication: COLITIS
     Dosage: 10 ML, PRN
     Route: 040
     Dates: start: 20190918, end: 20190919
  71. SODIUM CHLORIDE. [Concomitant]
     Active Substance: SODIUM CHLORIDE
     Indication: BREAST CELLULITIS
     Dosage: 75 DF
  72. SODIUM CHLORIDE. [Concomitant]
     Active Substance: SODIUM CHLORIDE
     Dosage: 10 ML
  73. CARBOPLATIN. [Suspect]
     Active Substance: CARBOPLATIN
     Dosage: 250 AUC , SINGLE
     Route: 042
     Dates: start: 20190510, end: 20190510
  74. LOSARTAN. [Concomitant]
     Active Substance: LOSARTAN
     Indication: PYREXIA
     Dosage: 50 MG, QD
     Route: 048
     Dates: start: 20190918, end: 20190919
  75. PREDNISONE. [Concomitant]
     Active Substance: PREDNISONE
     Dosage: 60 MG
  76. PREDNISONE. [Concomitant]
     Active Substance: PREDNISONE
     Dosage: 40 MG
  77. LANTUS [Concomitant]
     Active Substance: INSULIN GLARGINE
     Dosage: 30 UNK
  78. LANTUS [Concomitant]
     Active Substance: INSULIN GLARGINE
     Dosage: 21 UNK
  79. FAMOTIDINE. [Concomitant]
     Active Substance: FAMOTIDINE
     Indication: PYREXIA
     Dosage: 20 MG
     Route: 048
     Dates: start: 20190917, end: 20190917
  80. FAMOTIDINE. [Concomitant]
     Active Substance: FAMOTIDINE
     Indication: COLITIS
     Dosage: 25 MG
  81. METOPROLOL. [Concomitant]
     Active Substance: METOPROLOL
     Indication: HYPERTENSION
     Dosage: 12.5 MG, UNK
     Route: 048
     Dates: start: 20190921, end: 20190924
  82. METOPROLOL. [Concomitant]
     Active Substance: METOPROLOL
     Dosage: 12.5 MG
  83. CYMBALTA [Concomitant]
     Active Substance: DULOXETINE HYDROCHLORIDE
     Indication: DEPRESSION
     Dosage: 60 MG
  84. PALONOSETRON. [Concomitant]
     Active Substance: PALONOSETRON HYDROCHLORIDE
     Indication: PREMEDICATION
     Dosage: 0.25 MG
  85. APREPITANT. [Concomitant]
     Active Substance: APREPITANT
     Indication: PREMEDICATION
     Dosage: 130 MG
  86. DEXAMETHASONE. [Concomitant]
     Active Substance: DEXAMETHASONE
     Dosage: 20 MG
  87. ATIVAN [Concomitant]
     Active Substance: LORAZEPAM
     Indication: NAUSEA
     Dosage: 0.5 MG
  88. MIRALAX [Concomitant]
     Active Substance: POLYETHYLENE GLYCOL 3350
     Indication: CONSTIPATION
     Dosage: 17 G
  89. MELATONIN [Concomitant]
     Active Substance: MELATONIN
     Indication: SEPSIS
     Dosage: 3 UNK
  90. HYDROMORPHONE [Concomitant]
     Active Substance: HYDROMORPHONE
     Dosage: 2 UNK
  91. PANTOPRAZOL [Concomitant]
     Active Substance: PANTOPRAZOLE SODIUM
     Dosage: 20 UNK
  92. FLUCONAZOLE. [Concomitant]
     Active Substance: FLUCONAZOLE
     Indication: ALANINE AMINOTRANSFERASE INCREASED
  93. FUROSEMIDE. [Concomitant]
     Active Substance: FUROSEMIDE
     Indication: ALANINE AMINOTRANSFERASE INCREASED
     Dosage: 20 MG
  94. METOPROLOL TARTRATE. [Concomitant]
     Active Substance: METOPROLOL TARTRATE
     Indication: ALANINE AMINOTRANSFERASE INCREASED
     Dosage: 12.5 MG
  95. SODIUM CHLORIDE. [Concomitant]
     Active Substance: SODIUM CHLORIDE
     Indication: PYREXIA
     Dosage: 1224 ML, SINGLE
     Route: 042
     Dates: start: 20190917, end: 20190917
  96. SODIUM CHLORIDE. [Concomitant]
     Active Substance: SODIUM CHLORIDE
     Indication: ALANINE AMINOTRANSFERASE INCREASED
     Dosage: 20 ML, PRN
     Route: 040
     Dates: start: 20190918, end: 20190918
  97. SODIUM CHLORIDE. [Concomitant]
     Active Substance: SODIUM CHLORIDE
     Indication: CELLULITIS
     Dosage: 1170 ML
  98. CISPLATIN. [Concomitant]
     Active Substance: CISPLATIN
  99. DOSTARLIMAB [Suspect]
     Active Substance: DOSTARLIMAB
     Indication: OVARIAN CANCER
     Dosage: 500 MG, CYC?EVERY 3 WEEKS
     Dates: start: 20190201, end: 20190201
  100. LOSARTAN. [Concomitant]
     Active Substance: LOSARTAN
     Indication: ALANINE AMINOTRANSFERASE INCREASED
     Dosage: 50 MG
  101. LANTUS [Concomitant]
     Active Substance: INSULIN GLARGINE
     Dosage: 28 DF
  102. FAMOTIDINE. [Concomitant]
     Active Substance: FAMOTIDINE
     Indication: ALANINE AMINOTRANSFERASE INCREASED
     Dosage: 20 MG
  103. DEXAMETHASONE. [Concomitant]
     Active Substance: DEXAMETHASONE
     Indication: PREMEDICATION
     Dosage: 10 MG
  104. BACTROBAN [Concomitant]
     Active Substance: MUPIROCIN\MUPIROCIN CALCIUM
     Indication: FOLLICULITIS
     Dosage: 1 DF
  105. PANTOPRAZOL [Concomitant]
     Active Substance: PANTOPRAZOLE SODIUM
     Indication: COLITIS
     Dosage: 40 MG
  106. FLUCONAZOLE. [Concomitant]
     Active Substance: FLUCONAZOLE
     Indication: VAGINAL INFECTION
     Dosage: 100 MG
  107. ASPIRIN CHEWABLE TABLET [Concomitant]
     Indication: ALANINE AMINOTRANSFERASE INCREASED
     Dosage: 81 MG
  108. PREDNISOLONE ACETATE. [Concomitant]
     Active Substance: PREDNISOLONE ACETATE
     Indication: UVEITIS
  109. GLUTAMINE [Concomitant]
     Active Substance: GLUTAMINE
     Indication: NEURALGIA
     Dosage: 1500 MG
  110. CARBOPLATIN. [Suspect]
     Active Substance: CARBOPLATIN
     Indication: OVARIAN CANCER
     Dosage: 6 AUC
     Route: 042
     Dates: start: 20190111, end: 20190111
  111. PREDNISONE. [Concomitant]
     Active Substance: PREDNISONE
     Indication: ALANINE AMINOTRANSFERASE INCREASED
     Dosage: 10 MG, QD
     Route: 048
     Dates: start: 20190904, end: 20190910
  112. PREDNISONE. [Concomitant]
     Active Substance: PREDNISONE
     Dosage: 80 MG
  113. LANTUS [Concomitant]
     Active Substance: INSULIN GLARGINE
     Indication: ALANINE AMINOTRANSFERASE INCREASED
     Dosage: 30 DF
  114. ACETAMINOPHEN. [Concomitant]
     Active Substance: ACETAMINOPHEN
     Dosage: 650 MG
  115. PREGABALIN. [Concomitant]
     Active Substance: PREGABALIN
     Dosage: 100 MG
  116. ASPIRIN. [Concomitant]
     Active Substance: ASPIRIN
     Indication: PROPHYLAXIS
     Dosage: 81 MG
  117. LYRICA [Concomitant]
     Active Substance: PREGABALIN
     Indication: NEURALGIA
     Dosage: 50 MG
  118. LYRICA [Concomitant]
     Active Substance: PREGABALIN
     Indication: ALANINE AMINOTRANSFERASE INCREASED
     Dosage: 100 UNK
  119. EMLA [Concomitant]
     Active Substance: LIDOCAINE\PRILOCAINE
     Indication: CATHETER SITE PAIN
     Dosage: 1 DF
  120. GLYCERINE SUPPOSITORY [Concomitant]
     Indication: CONSTIPATION
     Dosage: 1 DF
  121. MELATONIN [Concomitant]
     Active Substance: MELATONIN
     Indication: INSOMNIA
     Dosage: 5 MG
  122. NOVOLOG [Concomitant]
     Active Substance: INSULIN ASPART
     Indication: ALANINE AMINOTRANSFERASE INCREASED
     Dosage: 2 DF
  123. DUREZOL [Concomitant]
     Active Substance: DIFLUPREDNATE
     Indication: UVEITIS
     Dosage: 60 MG
  124. SENNA [Concomitant]
     Active Substance: SENNA LEAF\SENNOSIDES\SENNOSIDES A AND B
     Indication: CELLULITIS
  125. PACLITAXEL. [Suspect]
     Active Substance: PACLITAXEL
     Indication: OVARIAN CANCER
     Dosage: 310 MG, UNK
     Route: 042
     Dates: start: 20190111, end: 20190111
  126. PREDNISONE. [Concomitant]
     Active Substance: PREDNISONE
     Dosage: 5 MG, QD
     Route: 048
     Dates: start: 20190911
  127. LANTUS [Concomitant]
     Active Substance: INSULIN GLARGINE
     Dosage: 19 UNK
  128. NEXIUM [Concomitant]
     Active Substance: ESOMEPRAZOLE MAGNESIUM
     Indication: GASTROOESOPHAGEAL REFLUX DISEASE
     Dosage: 40 MG, PRN
     Route: 048
     Dates: start: 20190911, end: 20200115
  129. NEXIUM [Concomitant]
     Active Substance: ESOMEPRAZOLE MAGNESIUM
     Dosage: 40 MG
  130. ACETAMINOPHEN. [Concomitant]
     Active Substance: ACETAMINOPHEN
     Indication: HEADACHE
     Dosage: 250 MG
  131. FAMOTIDINE. [Concomitant]
     Active Substance: FAMOTIDINE
     Indication: PREMEDICATION
     Dosage: 40 MG, BID
     Route: 048
     Dates: start: 20190921, end: 20190924
  132. FIBER [Concomitant]
     Active Substance: PSYLLIUM HUSK
     Indication: CONSTIPATION
     Dosage: 625 MG
  133. PROCHLORPERAZINE MALEATE. [Concomitant]
     Active Substance: PROCHLORPERAZINE MALEATE
     Indication: NAUSEA
     Dosage: 10 MG
  134. BOTULINUM TOXIN [Concomitant]
     Active Substance: BOTULINUM TOXIN NOS
     Indication: MUSCLE SPASTICITY
     Dosage: 500 MG
  135. METRONIDAZOLE. [Concomitant]
     Active Substance: METRONIDAZOLE
     Indication: COLITIS
     Dosage: 250 MG
  136. MELATONIN [Concomitant]
     Active Substance: MELATONIN
     Indication: ALANINE AMINOTRANSFERASE INCREASED
     Dosage: 6 UNK
  137. FLUCONAZOLE. [Concomitant]
     Active Substance: FLUCONAZOLE
     Indication: ORAL INFECTION
  138. MUCINEX ER [Concomitant]
     Indication: SEPSIS
     Dosage: 600 IU
  139. MUCINEX ER [Concomitant]
     Indication: BREAST CELLULITIS
  140. SODIUM CHLORIDE. [Concomitant]
     Active Substance: SODIUM CHLORIDE
     Dosage: 20 ML

REACTIONS (2)
  - Pyrexia [Recovered/Resolved]
  - Pyrexia [Recovered/Resolved]

NARRATIVE: CASE EVENT DATE: 20190917
